FAERS Safety Report 25376551 (Version 1)
Quarter: 2025Q2

REPORT INFORMATION
  Report Type: Spontaneous
  Country: CN (occurrence: CN)
  Receive Date: 20250530
  Receipt Date: 20250530
  Transmission Date: 20250717
  Serious: Yes (Hospitalization)
  Sender: ACCORD
  Company Number: CN-MLMSERVICE-20250513-PI498524-00077-1

PATIENT
  Age: 83 Year
  Sex: Male
  Weight: 65 kg

DRUGS (10)
  1. CAPECITABINE [Suspect]
     Active Substance: CAPECITABINE
     Indication: Skin squamous cell carcinoma metastatic
     Dates: start: 20231009
  2. CETUXIMAB [Suspect]
     Active Substance: CETUXIMAB
     Indication: Targeted cancer therapy
     Dates: start: 20231103
  3. NIMOTUZUMAB [Suspect]
     Active Substance: NIMOTUZUMAB
     Indication: Skin squamous cell carcinoma metastatic
     Dates: start: 20231009
  4. ZIMBERELIMAB [Suspect]
     Active Substance: ZIMBERELIMAB
     Indication: Skin squamous cell carcinoma metastatic
     Dates: start: 20231009
  5. ZIMBERELIMAB [Suspect]
     Active Substance: ZIMBERELIMAB
     Indication: Skin squamous cell carcinoma recurrent
     Dates: start: 20231009
  6. CAPECITABINE [Suspect]
     Active Substance: CAPECITABINE
     Indication: Metastases to eye
     Dates: start: 20231009
  7. NIMOTUZUMAB [Suspect]
     Active Substance: NIMOTUZUMAB
     Indication: Metastases to eye
     Dates: start: 20231009
  8. ZIMBERELIMAB [Suspect]
     Active Substance: ZIMBERELIMAB
     Indication: Metastases to eye
     Dates: start: 20231009
  9. CAPECITABINE [Suspect]
     Active Substance: CAPECITABINE
     Indication: Skin squamous cell carcinoma recurrent
     Dates: start: 20231009
  10. NIMOTUZUMAB [Suspect]
     Active Substance: NIMOTUZUMAB
     Indication: Skin squamous cell carcinoma recurrent
     Dates: start: 20231009

REACTIONS (3)
  - Skin toxicity [Recovered/Resolved]
  - Stomatitis [Recovered/Resolved]
  - Radiation skin injury [Recovered/Resolved]

NARRATIVE: CASE EVENT DATE: 20231101
